FAERS Safety Report 14289465 (Version 1)
Quarter: 2017Q4

REPORT INFORMATION
  Report Type: Spontaneous
  Country: US (occurrence: US)
  Receive Date: 20171214
  Receipt Date: 20171214
  Transmission Date: 20180321
  Serious: Yes (Hospitalization, Disabling, Other)
  Sender: FDA-Public Use
  Company Number: None

PATIENT
  Age: 37 Year
  Sex: Female
  Weight: 85.5 kg

DRUGS (2)
  1. OTHER TOPICAL STEROIDS [Suspect]
     Active Substance: UNSPECIFIED INGREDIENT
     Indication: DERMATITIS ATOPIC
  2. TOPICORT [Suspect]
     Active Substance: DESOXIMETASONE
     Indication: DERMATITIS ATOPIC
     Route: 061
     Dates: start: 20121205

REACTIONS (9)
  - Pyrexia [None]
  - Skin exfoliation [None]
  - Erythema [None]
  - Therapy cessation [None]
  - Staphylococcal infection [None]
  - Eczema [None]
  - Endocrine disorder [None]
  - Nerve injury [None]
  - Swelling face [None]

NARRATIVE: CASE EVENT DATE: 20121210
